FAERS Safety Report 24225698 (Version 1)
Quarter: 2024Q3

REPORT INFORMATION
  Report Type: Spontaneous
  Country: FR (occurrence: FR)
  Receive Date: 20240820
  Receipt Date: 20240820
  Transmission Date: 20241017
  Serious: Yes (Hospitalization)
  Sender: CHEPLAPHARM
  Company Number: None

PATIENT
  Age: 78 Year
  Sex: Male
  Weight: 42 kg

DRUGS (9)
  1. GANCICLOVIR [Suspect]
     Active Substance: GANCICLOVIR
     Indication: Cytomegalovirus infection reactivation
     Dosage: LYOPHILISATE FOR PARENTERAL USE, 210 MG OVER 1 HOUR EVERY 12 HOURS
     Route: 042
     Dates: start: 20240308, end: 20240313
  2. METHOTREXATE [Suspect]
     Active Substance: METHOTREXATE
     Dates: end: 20240313
  3. LOVENOX [Suspect]
     Active Substance: ENOXAPARIN SODIUM
     Dosage: PREVENTIVE DOSE
     Dates: start: 20240321
  4. LOVENOX [Suspect]
     Active Substance: ENOXAPARIN SODIUM
     Dates: end: 20240313
  5. LOVENOX [Suspect]
     Active Substance: ENOXAPARIN SODIUM
  6. METHYLPREDNISOLONE [Concomitant]
     Active Substance: METHYLPREDNISOLONE
     Dosage: 40 MG FOR 3 WEEKS
     Dates: start: 20240315, end: 20240325
  7. DEXAMETHASONE [Concomitant]
     Active Substance: DEXAMETHASONE
     Dates: end: 20240325
  8. Solupred [Concomitant]
  9. METHOTREXATE SODIUM [Concomitant]
     Active Substance: METHOTREXATE SODIUM

REACTIONS (1)
  - Immune thrombocytopenia [Recovered/Resolved]

NARRATIVE: CASE EVENT DATE: 20240311
